FAERS Safety Report 5270239-4 (Version None)
Quarter: 2007Q1

REPORT INFORMATION
  Report Type: 
  Country: None (occurrence: None)
  Receive Date: 20070320
  Receipt Date: 20070315
  Transmission Date: 20070707
  Serious: Yes (Death, Life-Threatening)
  Sender: FDA-Public Use
  Company Number: HQWYE477415SEP05

PATIENT
  Sex: Male
  Weight: 69 kg

DRUGS (13)
  1. GEMTUZUMAB OZOGAMICIN [Suspect]
     Indication: ACUTE MYELOID LEUKAEMIA
     Dosage: A SINGLE 11 MG DOSE
     Dates: start: 20050829, end: 20050829
  2. FLUCONAZOLE [Concomitant]
     Route: 048
     Dates: start: 20050825, end: 20050910
  3. ZOVIRAX [Concomitant]
     Route: 048
     Dates: start: 20050825, end: 20050910
  4. CONTRAMAL [Concomitant]
     Dosage: UNSPECIFIED DOSE AS NEEDED
     Route: 048
     Dates: start: 20050827, end: 20050909
  5. EUSAPRIM FORTE [Concomitant]
     Route: 048
     Dates: start: 20050825, end: 20050910
  6. PERFALGAN [Concomitant]
     Indication: PYREXIA
     Dosage: UNSPECIFIED DOSE AS NEEDED
     Route: 042
     Dates: start: 20050825, end: 20050909
  7. NYSTATIN [Concomitant]
     Dates: start: 20050825, end: 20050910
  8. TARGOCID [Concomitant]
     Indication: PYREXIA
     Route: 042
     Dates: start: 20050826, end: 20050909
  9. LASIX [Concomitant]
     Indication: WEIGHT INCREASED
     Dosage: 2 VIALS FOR WEIGHT GAIN } 1.5 KG/24 HRS
  10. ZANTAC [Concomitant]
     Route: 042
     Dates: start: 20050829, end: 20050910
  11. MAXIPIME [Concomitant]
     Indication: PYREXIA
     Route: 042
     Dates: start: 20050826, end: 20050907
  12. ALLOPURINOL [Concomitant]
     Route: 048
     Dates: start: 20050825, end: 20050910
  13. CORSODYL [Concomitant]
     Dates: start: 20050825, end: 20050910

REACTIONS (1)
  - EMPHYSEMA [None]
